FAERS Safety Report 9797861 (Version 1)
Quarter: 2014Q1

REPORT INFORMATION
  Report Type: Spontaneous
  Country: US (occurrence: None)
  Receive Date: 20140102
  Receipt Date: 20140102
  Transmission Date: 20141002
  Serious: Yes (Hospitalization)
  Sender: FDA-Public Use
  Company Number: None

PATIENT
  Age: 74 Year
  Sex: Male
  Weight: 82.4 kg

DRUGS (4)
  1. OXALIPLATIN [Suspect]
     Indication: PANCREATIC CARCINOMA
     Dosage: MFOLFIRINOX
     Route: 042
     Dates: start: 20131210
  2. IRINOTECAN [Suspect]
  3. 5FU [Suspect]
     Dosage: LAST DOSE RECEIVED ON 12/20/2013
     Route: 042
  4. LEUCOVORIN [Suspect]

REACTIONS (2)
  - Febrile neutropenia [None]
  - Urinary tract infection [None]
